FAERS Safety Report 9136136 (Version 1)
Quarter: 2013Q1

REPORT INFORMATION
  Report Type: Spontaneous
  Country: US (occurrence: US)
  Receive Date: 20130304
  Receipt Date: 20130304
  Transmission Date: 20140127
  Serious: No
  Sender: FDA-Public Use
  Company Number: US-ABBOTT-12P-163-0921332-00

PATIENT
  Sex: Female
  Weight: 63.11 kg

DRUGS (1)
  1. ANDROGEL 1% [Suspect]
     Indication: LIBIDO DECREASED
     Dates: start: 201203

REACTIONS (4)
  - Skin burning sensation [Recovered/Resolved]
  - Drug ineffective [Not Recovered/Not Resolved]
  - Off label use [Not Recovered/Not Resolved]
  - Drug administered at inappropriate site [Unknown]
